FAERS Safety Report 11769536 (Version 1)
Quarter: 2015Q4

REPORT INFORMATION
  Report Type: Spontaneous
  Country: US (occurrence: US)
  Receive Date: 20151123
  Receipt Date: 20151123
  Transmission Date: 20160304
  Serious: Yes (Other)
  Sender: FDA-Public Use
  Company Number: US-TEVA-610381USA

PATIENT
  Sex: Male

DRUGS (13)
  1. SYNRIBO [Suspect]
     Active Substance: OMACETAXINE MEPESUCCINATE
     Indication: CHRONIC MYELOID LEUKAEMIA
     Dosage: 2.49MG/0.71ML
     Route: 065
     Dates: start: 20150421
  2. QUINIDINE [Concomitant]
     Active Substance: QUINIDINE
  3. DIOVAN [Concomitant]
     Active Substance: VALSARTAN
  4. LANTUS [Concomitant]
     Active Substance: INSULIN GLARGINE
  5. NUVIA [Concomitant]
  6. GABAPENTIN. [Concomitant]
     Active Substance: GABAPENTIN
  7. OXYCODONE [Concomitant]
     Active Substance: OXYCODONE
  8. PHENERGAN [Concomitant]
     Active Substance: PROMETHAZINE HYDROCHLORIDE
  9. TETRACYCLINE [Concomitant]
     Active Substance: TETRACYCLINE
  10. OXYCONTIN [Concomitant]
     Active Substance: OXYCODONE HYDROCHLORIDE
  11. NOVOLOG [Concomitant]
     Active Substance: INSULIN ASPART
  12. NORVASC [Concomitant]
     Active Substance: AMLODIPINE BESYLATE
  13. PROZAC [Concomitant]
     Active Substance: FLUOXETINE HYDROCHLORIDE

REACTIONS (1)
  - Blood glucose increased [Unknown]
